FAERS Safety Report 9385215 (Version 2)
Quarter: 2013Q3

REPORT INFORMATION
  Report Type: Spontaneous
  Country: DE (occurrence: DE)
  Receive Date: 20130705
  Receipt Date: 20130710
  Transmission Date: 20140515
  Serious: Yes (Life-Threatening, Hospitalization)
  Sender: FDA-Public Use
  Company Number: DE-B.I. PHARMACEUTICALS,INC./RIDGEFIELD-2013-DE-01749DE

PATIENT
  Age: 86 Year
  Sex: Female
  Weight: 48 kg

DRUGS (9)
  1. PRADAXA [Suspect]
     Indication: VENTRICULAR FIBRILLATION
     Dosage: 220 MG
     Route: 048
     Dates: start: 20130517
  2. NORSPAN [Concomitant]
     Dosage: 0.7143 ANZ
  3. AMLODIPIN [Concomitant]
     Indication: HYPERTENSION
     Dosage: 5 MG
     Route: 048
     Dates: start: 2012
  4. METOPROLOL [Concomitant]
     Indication: HYPERTENSION
     Dosage: 50 MG
     Route: 048
     Dates: start: 2012
  5. PANTOZOL [Concomitant]
  6. OXYBUTYNIN [Concomitant]
     Indication: HYPERTENSION
     Dosage: 5 MG
     Route: 048
     Dates: start: 2012
  7. RAMIPRIL [Concomitant]
     Dosage: 5 MG
  8. DIGITOXIN [Concomitant]
  9. L-THYROXIN 75 [Concomitant]

REACTIONS (5)
  - Dyspnoea [Recovered/Resolved]
  - Dysphagia [Recovered/Resolved]
  - Oesophagitis [Recovered/Resolved]
  - Choking [Unknown]
  - Bronchospasm [Unknown]
